FAERS Safety Report 18328034 (Version 1)
Quarter: 2020Q3

REPORT INFORMATION
  Report Type: Spontaneous
  Country: GB (occurrence: GB)
  Receive Date: 20200930
  Receipt Date: 20200930
  Transmission Date: 20201103
  Serious: Yes (Hospitalization, Other)
  Sender: FDA-Public Use
  Company Number: GB-ADVANZ PHARMA-E2B_00009166

PATIENT

DRUGS (3)
  1. TACROLIMUS. [Suspect]
     Active Substance: TACROLIMUS
     Indication: PROPHYLAXIS AGAINST TRANSPLANT REJECTION
  2. CLARITHROMYCIN. [Suspect]
     Active Substance: CLARITHROMYCIN
     Indication: INFECTED SKIN ULCER
     Dosage: 1000 MG, QD
     Route: 048
     Dates: start: 20170717, end: 20170724
  3. DIGOXIN. [Suspect]
     Active Substance: DIGOXIN

REACTIONS (5)
  - Acute kidney injury [Unknown]
  - Drug level increased [Unknown]
  - Malaise [Unknown]
  - Labelled drug-drug interaction medication error [Recovered/Resolved]
  - Toxicity to various agents [Unknown]

NARRATIVE: CASE EVENT DATE: 20170721
